FAERS Safety Report 18774056 (Version 1)
Quarter: 2021Q1

REPORT INFORMATION
  Report Type: Spontaneous
  Country: US (occurrence: US)
  Receive Date: 20210122
  Receipt Date: 20210122
  Transmission Date: 20210419
  Serious: Yes (Death)
  Sender: FDA-Public Use
  Company Number: None

PATIENT
  Age: 6 Month
  Sex: Female

DRUGS (1)
  1. CHILDRENS BENADRYL ALLERGY [Suspect]
     Active Substance: DIPHENHYDRAMINE HYDROCHLORIDE
     Dates: end: 20190124

REACTIONS (4)
  - Legal problem [None]
  - Intentional overdose [None]
  - Sedation [None]
  - Victim of crime [None]

NARRATIVE: CASE EVENT DATE: 20190124
